FAERS Safety Report 6479742-2 (Version None)
Quarter: 2009Q4

REPORT INFORMATION
  Report Type: 
  Country: None (occurrence: None)
  Receive Date: 20091208
  Receipt Date: 20091125
  Transmission Date: 20100525
  Serious: Yes (Other)
  Sender: FDA-Public Use
  Company Number: PHHY2009DE47660

PATIENT
  Sex: Female
  Weight: 70 kg

DRUGS (1)
  1. EXTAVIA [Suspect]
     Indication: MULTIPLE SCLEROSIS
     Dosage: 250 UG, QOD
     Route: 058
     Dates: start: 20091026, end: 20091030

REACTIONS (8)
  - ARRHYTHMIA [None]
  - CHILLS [None]
  - ERYTHEMA [None]
  - HEADACHE [None]
  - HYPERTONIA [None]
  - HYPOAESTHESIA [None]
  - JOINT SWELLING [None]
  - NAUSEA [None]
